FAERS Safety Report 9528873 (Version 2)
Quarter: 2014Q1

REPORT INFORMATION
  Report Type: Spontaneous
  Country: CA (occurrence: CA)
  Receive Date: 20130917
  Receipt Date: 20140218
  Transmission Date: 20141002
  Serious: Yes (Death, Hospitalization)
  Sender: FDA-Public Use
  Company Number: CA-SHIRE-ALL1-2013-06261

PATIENT
  Age: 51 Year
  Sex: Male
  Weight: 87 kg

DRUGS (2)
  1. MEZAVANT [Suspect]
     Indication: CROHN^S DISEASE
     Dosage: 2.4 G, 2X/DAY:BID (1.2G-2 TABLETS TWICE DAILY)
     Route: 048
     Dates: start: 20120809
  2. COVERSYL                           /00790702/ [Concomitant]
     Indication: HYPERTENSION
     Dosage: 2 MG, 1X/DAY:QD
     Route: 048
     Dates: start: 20120725

REACTIONS (15)
  - Adverse drug reaction [Fatal]
  - Myocarditis [Fatal]
  - Chills [Not Recovered/Not Resolved]
  - Decreased appetite [Not Recovered/Not Resolved]
  - Blood potassium increased [Unknown]
  - Blood sodium increased [Unknown]
  - Faecal incontinence [Unknown]
  - Feeling of body temperature change [Unknown]
  - Malaise [Unknown]
  - Abdominal pain [Not Recovered/Not Resolved]
  - Nausea [Not Recovered/Not Resolved]
  - Pyrexia [Not Recovered/Not Resolved]
  - Diarrhoea [Not Recovered/Not Resolved]
  - Off label use [Recovered/Resolved]
  - Drug prescribing error [Recovered/Resolved]
